FAERS Safety Report 12917467 (Version 1)
Quarter: 2016Q4

REPORT INFORMATION
  Report Type: Spontaneous
  Country: US (occurrence: US)
  Receive Date: 20161107
  Receipt Date: 20161107
  Transmission Date: 20170207
  Serious: Yes (Other)
  Sender: FDA-Public Use
  Company Number: ALCN2016US007433

PATIENT
  Sex: Male

DRUGS (1)
  1. BSS [Suspect]
     Active Substance: CALCIUM CHLORIDE\MAGNESIUM CHLORIDE\POTASSIUM CHLORIDE\SODIUM ACETATE\SODIUM CHLORIDE\SODIUM CITRATE
     Indication: CATARACT OPERATION
     Dosage: 300 ML, UNK
     Route: 065
     Dates: start: 20160707, end: 20160707

REACTIONS (8)
  - Vitreous fibrin [Recovered/Resolved]
  - Intraocular pressure increased [Unknown]
  - Eye pain [Recovered/Resolved]
  - Pain [Unknown]
  - Visual acuity reduced [Unknown]
  - Toxic anterior segment syndrome [Recovered/Resolved]
  - Condition aggravated [Unknown]
  - Eye inflammation [Recovered/Resolved]

NARRATIVE: CASE EVENT DATE: 20160708
